FAERS Safety Report 5989009-4 (Version None)
Quarter: 2008Q4

REPORT INFORMATION
  Report Type: 
  Country: None (occurrence: None)
  Receive Date: 20081210
  Receipt Date: 20081209
  Transmission Date: 20090506
  Serious: Yes (Death, Hospitalization)
  Sender: FDA-Public Use
  Company Number: A0759858A

PATIENT
  Age: 88 Year
  Sex: Female
  Weight: 69 kg

DRUGS (3)
  1. SERETIDE [Suspect]
     Route: 055
     Dates: start: 20080201, end: 20080421
  2. BEROTEC [Concomitant]
     Dates: start: 20061201, end: 20080401
  3. ATROVENT [Concomitant]
     Dates: start: 20061201, end: 20080401

REACTIONS (1)
  - RESPIRATORY ARREST [None]
